FAERS Safety Report 6144902-7 (Version None)
Quarter: 2009Q2

REPORT INFORMATION
  Report Type: 
  Country: None (occurrence: None)
  Receive Date: 20090402
  Receipt Date: 20090121
  Transmission Date: 20091009
  Serious: No
  Sender: FDA-Public Use
  Company Number: 1000004265

PATIENT
  Age: 60 Year
  Sex: Female

DRUGS (11)
  1. BYSTOLIC [Suspect]
     Indication: HYPERTENSION
     Dosage: (1 IN 1 D), ORAL
     Route: 048
     Dates: start: 20090101
  2. AVALIDE [Concomitant]
  3. LANTUS [Concomitant]
  4. HUMALOG [Concomitant]
  5. VESICARE [Concomitant]
  6. FLONASE [Concomitant]
  7. FEXOFENADINE [Concomitant]
  8. PREVACID [Concomitant]
  9. MOBIC [Concomitant]
  10. FLUOXETINE [Concomitant]
  11. DICYCLOMINE [Concomitant]

REACTIONS (1)
  - BLOOD GLUCOSE DECREASED [None]
